FAERS Safety Report 18340850 (Version 1)
Quarter: 2020Q4

REPORT INFORMATION
  Report Type: Spontaneous
  Country: GB (occurrence: GB)
  Receive Date: 20201003
  Receipt Date: 20201003
  Transmission Date: 20210113
  Serious: Yes (Other)
  Sender: FDA-Public Use
  Company Number: GB-SUN PHARMACEUTICAL INDUSTRIES LTD-2020RR-263173

PATIENT
  Age: 17 Year
  Sex: Female
  Weight: 60 kg

DRUGS (1)
  1. CITALOPRAM [Suspect]
     Active Substance: CITALOPRAM HYDROBROMIDE
     Indication: DEPRESSION
     Dosage: 20 MILLIGRAMS, UNK
     Route: 048
     Dates: start: 20200717

REACTIONS (2)
  - Mental impairment [Not Recovered/Not Resolved]
  - Flat affect [Unknown]

NARRATIVE: CASE EVENT DATE: 202009
